FAERS Safety Report 8847526 (Version 2)
Quarter: 2012Q4

REPORT INFORMATION
  Report Type: 
  Country: US (occurrence: US)
  Receive Date: 20121018
  Receipt Date: 20121112
  Transmission Date: 20130627
  Serious: Yes (Other)
  Sender: FDA-Public Use
  Company Number: US-ELI_LILLY_AND_COMPANY-US201210002027

PATIENT
  Age: 76 Year
  Sex: Male
  Weight: 63.95 kg

DRUGS (6)
  1. CYMBALTA [Suspect]
     Indication: BACK PAIN
     Dosage: 30 mg, qd
     Dates: start: 20120807, end: 20120827
  2. CYMBALTA [Suspect]
     Dosage: 60 mg, qd
     Dates: start: 20120828, end: 20120927
  3. CYMBALTA [Suspect]
     Dosage: 30 mg, qd
     Dates: start: 20120927, end: 20121004
  4. OMEPRAZOLE [Concomitant]
  5. ARAVA [Concomitant]
  6. ENBREL [Concomitant]

REACTIONS (10)
  - Hepatitis [Recovered/Resolved]
  - Diarrhoea [Recovered/Resolved]
  - Anxiety [Recovered/Resolved]
  - Nausea [Recovered/Resolved]
  - Retching [Recovered/Resolved]
  - Asthenia [Recovered/Resolved]
  - Feeling abnormal [Recovered/Resolved]
  - Restlessness [Recovered/Resolved]
  - Cholelithiasis [Recovered/Resolved]
  - Gallbladder disorder [Recovered/Resolved]
